FAERS Safety Report 10349983 (Version 1)
Quarter: 2014Q3

REPORT INFORMATION
  Report Type: Spontaneous
  Country: US (occurrence: US)
  Receive Date: 20140730
  Receipt Date: 20140730
  Transmission Date: 20150326
  Serious: No
  Sender: FDA-Public Use
  Company Number: US-GLAXOSMITHKLINE-A1045281A

PATIENT
  Age: 70 Year
  Sex: Female

DRUGS (10)
  1. SUMATRIPTAN [Suspect]
     Active Substance: SUMATRIPTAN
     Indication: MIGRAINE
     Route: 065
  2. UNSPECIFIED THYROID MEDICATION [Concomitant]
  3. IMITREX [Suspect]
     Active Substance: SUMATRIPTAN\SUMATRIPTAN SUCCINATE
     Indication: MIGRAINE
     Route: 065
     Dates: start: 1985
  4. SUMATRIPTAN [Suspect]
     Active Substance: SUMATRIPTAN
     Indication: MIGRAINE
     Route: 045
     Dates: start: 1985
  5. IMITREX [Suspect]
     Active Substance: SUMATRIPTAN\SUMATRIPTAN SUCCINATE
     Indication: MIGRAINE
     Route: 045
     Dates: start: 1985
  6. ESTRADIOL. [Concomitant]
     Active Substance: ESTRADIOL
  7. SUMATRIPTAN [Suspect]
     Active Substance: SUMATRIPTAN
     Indication: MIGRAINE
     Route: 065
     Dates: start: 1985
  8. SUMATRIPTAN [Suspect]
     Active Substance: SUMATRIPTAN
     Indication: MIGRAINE
     Route: 065
     Dates: start: 1985
  9. METOPROLOL [Concomitant]
     Active Substance: METOPROLOL
  10. IMITREX [Suspect]
     Active Substance: SUMATRIPTAN\SUMATRIPTAN SUCCINATE
     Indication: MIGRAINE
     Route: 065
     Dates: start: 1985

REACTIONS (5)
  - Migraine [Unknown]
  - Pain in extremity [Unknown]
  - Overdose [Unknown]
  - Drug ineffective [Unknown]
  - Product quality issue [Unknown]

NARRATIVE: CASE EVENT DATE: 1985
